FAERS Safety Report 8194924-X (Version None)
Quarter: 2012Q1

REPORT INFORMATION
  Report Type: 
  Country: None (occurrence: None)
  Receive Date: 20120308
  Receipt Date: 20110702
  Transmission Date: 20120608
  Serious: No
  Sender: FDA-Public Use
  Company Number: US-GLAXOSMITHKLINE-A0934873A

PATIENT
  Sex: Female

DRUGS (5)
  1. NICOTINE [Suspect]
     Indication: EX-TOBACCO USER
  2. NICORETTE [Suspect]
     Indication: EX-TOBACCO USER
  3. COMMIT [Suspect]
     Route: 002
  4. NICORETTE (MINT) [Suspect]
     Route: 002
  5. NICOTINE [Suspect]
     Route: 062

REACTIONS (5)
  - THERMAL BURN [None]
  - OROPHARYNGEAL BLISTERING [None]
  - ABDOMINAL DISCOMFORT [None]
  - HYPERPHAGIA [None]
  - DRUG INEFFECTIVE [None]
